FAERS Safety Report 8351375-2 (Version None)
Quarter: 2012Q2

REPORT INFORMATION
  Report Type: 
  Country: None (occurrence: None)
  Receive Date: 20120510
  Receipt Date: 20120419
  Transmission Date: 20120825
  Serious: Yes (Death, Hospitalization)
  Sender: FDA-Public Use
  Company Number: FR-MERCK-1102FRA00038

PATIENT
  Age: 76 Year
  Sex: Female

DRUGS (13)
  1. INSULIN GLARGINE [Concomitant]
     Route: 058
     Dates: start: 20100922, end: 20101224
  2. DILTIAZEM HYDROCHLORIDE [Concomitant]
     Indication: HYPERTENSION
     Route: 048
  3. BISOPROLOL FUMARATE [Concomitant]
     Route: 048
  4. JANUMET [Suspect]
     Indication: TYPE 2 DIABETES MELLITUS
     Route: 048
     Dates: start: 20091215, end: 20101208
  5. INSULIN GLARGINE [Concomitant]
     Indication: TYPE 2 DIABETES MELLITUS
     Route: 058
     Dates: end: 20100407
  6. INSULIN GLARGINE [Concomitant]
     Route: 058
     Dates: start: 20100729, end: 20100921
  7. INSULIN GLARGINE [Concomitant]
     Route: 058
     Dates: start: 20110418
  8. DIGOXIN [Concomitant]
     Route: 048
  9. FOSINOPRIL SODIUM AND HYDROCHLOROTHIAZIDE [Concomitant]
     Route: 048
  10. INSULIN GLARGINE [Concomitant]
     Route: 058
     Dates: start: 20101225, end: 20110417
  11. INSULIN GLARGINE [Concomitant]
     Route: 058
     Dates: start: 20100408, end: 20100728
  12. GLICLAZIDE [Concomitant]
     Indication: TYPE 2 DIABETES MELLITUS
     Route: 048
     Dates: start: 20100408, end: 20101224
  13. FLUINDIONE [Concomitant]
     Indication: ARRHYTHMIA
     Route: 048

REACTIONS (8)
  - CARDIAC FAILURE [None]
  - HYPOGLYCAEMIA [None]
  - METASTASIS [None]
  - WEIGHT DECREASED [None]
  - METASTASES TO PERITONEUM [None]
  - ANURIA [None]
  - BRONCHITIS [None]
  - COLON CANCER [None]
